FAERS Safety Report 5860201-2 (Version None)
Quarter: 2008Q3

REPORT INFORMATION
  Report Type: 
  Country: None (occurrence: None)
  Receive Date: 20080818
  Receipt Date: 20080707
  Transmission Date: 20090109
  Serious: No
  Sender: FDA-Public Use
  Company Number: WAES 0807USA01134

PATIENT
  Age: 65 Year
  Sex: Female

DRUGS (8)
  1. JANUVIA [Suspect]
     Indication: TYPE 2 DIABETES MELLITUS
     Dosage: 100 MG/DAILY/PO
     Route: 048
     Dates: start: 20080401, end: 20080101
  2. LANTUS [Concomitant]
  3. LEXAPRO [Concomitant]
  4. LOTREL [Concomitant]
  5. NEXIUM [Concomitant]
  6. ALLERGENIC EXTRACT [Concomitant]
  7. ASPIRIN [Concomitant]
  8. LORATADINE [Concomitant]

REACTIONS (3)
  - LYMPHADENOPATHY [None]
  - RASH [None]
  - SWELLING FACE [None]
